FAERS Safety Report 11174390 (Version 2)
Quarter: 2015Q3

REPORT INFORMATION
  Report Type: Spontaneous
  Country: US (occurrence: US)
  Receive Date: 20150609
  Receipt Date: 20150825
  Transmission Date: 20151125
  Serious: Yes (Hospitalization, Other)
  Sender: FDA-Public Use
  Company Number: US-SA-2015SA079404

PATIENT
  Age: 61 Year
  Sex: Male
  Weight: 61 kg

DRUGS (11)
  1. INVESTIGATIONAL DRUG [Suspect]
     Active Substance: INVESTIGATIONAL PRODUCT
     Indication: TRANSITIONAL CELL CARCINOMA
     Dosage: 3 TIME A WEEK
     Route: 065
     Dates: start: 20150309
  2. FRAGMIN [Suspect]
     Active Substance: DALTEPARIN SODIUM
     Indication: DEEP VEIN THROMBOSIS
     Route: 058
     Dates: start: 20150420
  3. PERCOCET [Concomitant]
     Active Substance: ACETAMINOPHEN\OXYCODONE HYDROCHLORIDE
  4. ZYPREXA [Concomitant]
     Active Substance: OLANZAPINE
     Dates: start: 20150323
  5. KYTRIL [Concomitant]
     Active Substance: GRANISETRON HYDROCHLORIDE
     Dates: start: 20150316
  6. LOVENOX [Suspect]
     Active Substance: ENOXAPARIN SODIUM
     Route: 065
     Dates: start: 20150408
  7. DULCOLAX [Concomitant]
     Active Substance: BISACODYL OR DOCUSATE SODIUM
     Dates: start: 20150413
  8. INVESTIGATIONAL DRUG [Suspect]
     Active Substance: INVESTIGATIONAL PRODUCT
     Indication: TRANSITIONAL CELL CARCINOMA
     Route: 065
     Dates: end: 20150415
  9. FRAGMIN [Suspect]
     Active Substance: DALTEPARIN SODIUM
     Indication: DEEP VEIN THROMBOSIS
     Route: 058
     Dates: start: 20150408, end: 20150417
  10. MIRALAX [Concomitant]
     Active Substance: POLYETHYLENE GLYCOL 3350
     Dates: start: 20150413
  11. XANAX [Concomitant]
     Active Substance: ALPRAZOLAM
     Dates: start: 20141008

REACTIONS (4)
  - Lower gastrointestinal haemorrhage [Unknown]
  - Dehydration [Recovered/Resolved]
  - Vomiting [Recovered/Resolved]
  - Haematemesis [Recovered/Resolved]

NARRATIVE: CASE EVENT DATE: 20150416
